FAERS Safety Report 9314392 (Version 8)
Quarter: 2014Q2

REPORT INFORMATION
  Report Type: Report from Study
  Country: IT (occurrence: IT)
  Receive Date: 20130529
  Receipt Date: 20140624
  Transmission Date: 20141212
  Serious: Yes (Hospitalization, Other)
  Sender: FDA-Public Use
  Company Number: IT-009507513-1305ITA010541

PATIENT
  Age: 70 Year
  Sex: Male
  Weight: 81 kg

DRUGS (8)
  1. BOCEPREVIR [Suspect]
     Indication: HEPATIC CIRRHOSIS
     Dosage: 12 TABLETS, DAILY,12 TABLETS, DAILY
     Route: 048
     Dates: start: 20130417, end: 20130518
  2. BOCEPREVIR [Suspect]
     Dosage: UNK
  3. PEGINTRON [Suspect]
     Indication: HEPATIC CIRRHOSIS
     Dosage: 120 MICROGRAM, QW, PEN
     Route: 058
     Dates: start: 20130320, end: 20130518
  4. RIBAVIRIN [Suspect]
     Indication: HEPATIC CIRRHOSIS
     Dosage: 1.2 G, QD
     Route: 048
     Dates: start: 20130320, end: 20130518
  5. RIBAVIRIN [Suspect]
     Dosage: 400 MG, QD
     Route: 048
     Dates: start: 2013, end: 20130518
  6. HYDROCHLOROTHIAZIDE [Concomitant]
     Indication: HYPERTENSION
     Dosage: 300 MG, DAILY
     Route: 048
     Dates: start: 20030101
  7. ASPIRIN [Concomitant]
     Indication: TRANSIENT ISCHAEMIC ATTACK
     Dosage: 200 MG, DAILY
     Route: 048
     Dates: start: 20040109
  8. INSULIN [Concomitant]
     Indication: DIABETES MELLITUS
     Dosage: 8+8+14 UI
     Route: 058
     Dates: start: 20100301

REACTIONS (4)
  - Renal impairment [Recovered/Resolved]
  - Anaemia [Recovered/Resolved]
  - Nausea [Recovered/Resolved]
  - Vomiting [Recovered/Resolved]
